FAERS Safety Report 23712513 (Version 1)
Quarter: 2024Q2

REPORT INFORMATION
  Report Type: Spontaneous
  Country: US (occurrence: US)
  Receive Date: 20240405
  Receipt Date: 20240405
  Transmission Date: 20240715
  Serious: No
  Sender: FDA-Public Use
  Company Number: US-HALEON-2165792

PATIENT

DRUGS (1)
  1. EXCEDRIN MIGRAINE GELTABS [Suspect]
     Active Substance: ACETAMINOPHEN\ASPIRIN\CAFFEINE
     Indication: Hangover

REACTIONS (1)
  - Product use in unapproved indication [Unknown]
